FAERS Safety Report 7765843-5 (Version None)
Quarter: 2011Q3

REPORT INFORMATION
  Report Type: 
  Country: None (occurrence: None)
  Receive Date: 20110921
  Receipt Date: 20110906
  Transmission Date: 20111222
  Serious: Yes (Death, Hospitalization)
  Sender: FDA-Public Use
  Company Number: PL-WATSON-2011-14691

PATIENT
  Age: 4 Year
  Sex: Male

DRUGS (2)
  1. TACROLIMUS [Suspect]
     Indication: TRANSPLANT REJECTION
     Dosage: 3 MG DAILY
     Route: 048
  2. CYCLOSPORINE [Suspect]
     Indication: TRANSPLANT REJECTION
     Dosage: UNK

REACTIONS (7)
  - DRUG INEFFECTIVE [None]
  - HEMIPLEGIA [None]
  - CONVULSION [None]
  - DYSPNOEA [None]
  - STRABISMUS [None]
  - CEREBROVASCULAR INSUFFICIENCY [None]
  - ALTERED STATE OF CONSCIOUSNESS [None]
